FAERS Safety Report 4766606-5 (Version None)
Quarter: 2005Q3

REPORT INFORMATION
  Report Type: 
  Country: None (occurrence: None)
  Receive Date: 20050908
  Receipt Date: 20050829
  Transmission Date: 20060218
  Serious: Yes (Death, Life-Threatening, Hospitalization, Disabling)
  Sender: FDA-Public Use
  Company Number: 2005071727

PATIENT
  Age: 66 Year
  Sex: Female
  Weight: 72.5755 kg

DRUGS (10)
  1. BEXTRA [Suspect]
     Indication: ARTHRALGIA
     Dosage: 1 TABLET 2 IN 1 AS NECESSARY), ORAL
     Route: 048
     Dates: start: 20040901
  2. BEXTRA [Suspect]
     Indication: OSTEOARTHRITIS
     Dosage: 1 TABLET 2 IN 1 AS NECESSARY), ORAL
     Route: 048
     Dates: start: 20040901
  3. CYCLOBENZAPRINE HCL [Concomitant]
  4. MOBIC [Concomitant]
  5. NORVASC [Concomitant]
  6. BENICAR HCT [Concomitant]
  7. METOPROLOL TARTRATE [Concomitant]
  8. VYTORIN [Concomitant]
  9. NEXIUM [Concomitant]
  10. DARVOCET-N 100 [Concomitant]

REACTIONS (5)
  - BRAIN DEATH [None]
  - CEREBROVASCULAR ACCIDENT [None]
  - HAEMORRHAGE [None]
  - PAIN [None]
  - THROMBOSIS [None]
